FAERS Safety Report 21238041 (Version 1)
Quarter: 2022Q3

REPORT INFORMATION
  Report Type: Report from Study
  Country: EG (occurrence: EG)
  Receive Date: 20220822
  Receipt Date: 20220822
  Transmission Date: 20221027
  Serious: Yes (Other)
  Sender: FDA-Public Use
  Company Number: EG-NOVARTISPH-NVSC2022EG185771

PATIENT
  Age: 34 Year
  Sex: Female

DRUGS (2)
  1. TASIGNA [Suspect]
     Active Substance: NILOTINIB
     Indication: Chronic myeloid leukaemia
     Dosage: 800 MG, QD (4 CAPS/DAY)
     Route: 065
     Dates: start: 20210715, end: 202108
  2. TASIGNA [Suspect]
     Active Substance: NILOTINIB
     Dosage: 600 MG, QD (ONE CAP IN THE MORNING AND 2 CAPS AT NIGHT)
     Route: 065
     Dates: start: 202108

REACTIONS (12)
  - Vocal cord inflammation [Recovering/Resolving]
  - Dysphonia [Recovered/Resolved]
  - Hair texture abnormal [Not Recovered/Not Resolved]
  - Rash [Recovering/Resolving]
  - Acne [Recovering/Resolving]
  - Alopecia [Not Recovered/Not Resolved]
  - Dysuria [Recovering/Resolving]
  - Genital tract inflammation [Unknown]
  - Somnolence [Recovering/Resolving]
  - Glycosylated haemoglobin increased [Unknown]
  - Fatigue [Recovering/Resolving]
  - White blood cell count decreased [Recovered/Resolved]

NARRATIVE: CASE EVENT DATE: 20210701
